FAERS Safety Report 5035317-3 (Version None)
Quarter: 2006Q2

REPORT INFORMATION
  Report Type: 
  Country: None (occurrence: None)
  Receive Date: 20060622
  Receipt Date: 20060605
  Transmission Date: 20061013
  Serious: Yes (Hospitalization)
  Sender: FDA-Public Use
  Company Number: GR200605002281

PATIENT
  Age: 22 Year
  Sex: Female
  Weight: 57 kg

DRUGS (1)
  1. FLUOXETINE HYDROCHLORIDE [Suspect]
     Indication: DEPRESSION
     Dosage: 10 MG, DAILY (1/D), ORAL
     Route: 048
     Dates: start: 20060502, end: 20060501

REACTIONS (5)
  - HYPERPHAGIA [None]
  - INFLAMMATION [None]
  - SALPINGITIS [None]
  - VAGINAL HAEMORRHAGE [None]
  - VOMITING [None]
